FAERS Safety Report 9134429 (Version 4)
Quarter: 2013Q2

REPORT INFORMATION
  Report Type: Spontaneous
  Country: JP (occurrence: JP)
  Receive Date: 20130304
  Receipt Date: 20130530
  Transmission Date: 20140414
  Serious: Yes (Hospitalization, Other)
  Sender: FDA-Public Use
  Company Number: JP-ELI_LILLY_AND_COMPANY-JP201302006501

PATIENT
  Age: 67 Year
  Sex: Male

DRUGS (8)
  1. HUMALOG LISPRO [Suspect]
     Indication: TYPE 2 DIABETES MELLITUS
     Dosage: UNK
     Dates: start: 20081001, end: 20081017
  2. HUMALOG LISPRO [Suspect]
     Dosage: UNK
     Route: 058
     Dates: start: 20111102, end: 20121022
  3. LEVEMIR [Concomitant]
     Indication: TYPE 2 DIABETES MELLITUS
     Dosage: UNK
     Dates: start: 20100220, end: 20101220
  4. AMARYL [Concomitant]
     Indication: TYPE 2 DIABETES MELLITUS
     Dosage: UNK
     Dates: start: 20081017, end: 20110620
  5. LANTUS [Concomitant]
     Indication: TYPE 2 DIABETES MELLITUS
     Dosage: UNK
     Dates: start: 20101220, end: 201111
  6. NOVORAPID [Concomitant]
  7. NOVOLIN R [Concomitant]
     Dosage: UNK
     Dates: start: 20081001, end: 20081017
  8. NOVOLIN N [Concomitant]
     Dosage: UNK
     Dates: start: 20081001, end: 20081017

REACTIONS (4)
  - Hyperglycaemia [Not Recovered/Not Resolved]
  - Anti-insulin antibody positive [Not Recovered/Not Resolved]
  - Blood insulin increased [Not Recovered/Not Resolved]
  - Hypoglycaemia [Not Recovered/Not Resolved]
